FAERS Safety Report 9739117 (Version 1)
Quarter: 2013Q4

REPORT INFORMATION
  Report Type: Spontaneous
  Country: US (occurrence: US)
  Receive Date: 20131209
  Receipt Date: 20131209
  Transmission Date: 20140711
  Serious: No
  Sender: FDA-Public Use
  Company Number: US-BAYER-2013-149727

PATIENT
  Age: 70 Year
  Sex: Male
  Weight: 87.98 kg

DRUGS (3)
  1. ALEVE CAPLET [Suspect]
     Indication: ARTHRITIS
     Dosage: 1 DF, PRN
     Route: 048
     Dates: start: 20131205
  2. PREDNISONE [Concomitant]
  3. METHOTREXATE [METHOTREXATE] [Concomitant]
     Dosage: , WEEKLY

REACTIONS (1)
  - Drug ineffective [None]
